FAERS Safety Report 11395797 (Version 1)
Quarter: 2015Q3

REPORT INFORMATION
  Report Type: Spontaneous
  Country: US (occurrence: US)
  Receive Date: 20150819
  Receipt Date: 20150819
  Transmission Date: 20151125
  Serious: No
  Sender: FDA-Public Use
  Company Number: US-JNJFOC-20150807287

PATIENT

DRUGS (2)
  1. XARELTO [Suspect]
     Active Substance: RIVAROXABAN
     Indication: DEEP VEIN THROMBOSIS
     Dosage: FOR 30 DAYS
     Route: 048
     Dates: start: 20150803
  2. XARELTO [Suspect]
     Active Substance: RIVAROXABAN
     Indication: PULMONARY EMBOLISM
     Dosage: FOR 30 DAYS
     Route: 048
     Dates: start: 20150803

REACTIONS (1)
  - Drug prescribing error [Unknown]

NARRATIVE: CASE EVENT DATE: 20150803
